FAERS Safety Report 8993069 (Version 1)
Quarter: 2013Q1

REPORT INFORMATION
  Report Type: Report from Study
  Country: FR (occurrence: FR)
  Receive Date: 20130102
  Receipt Date: 20130102
  Transmission Date: 20140127
  Serious: Yes (Other)
  Sender: FDA-Public Use
  Company Number: FR-ROCHE-767395

PATIENT
  Age: 73 Year
  Sex: Male

DRUGS (13)
  1. RITUXIMAB [Suspect]
     Indication: B-CELL SMALL LYMPHOCYTIC LYMPHOMA
     Route: 041
     Dates: start: 20081026, end: 20090107
  2. RITUXIMAB [Suspect]
     Route: 041
     Dates: start: 20090107, end: 20090107
  3. RITUXIMAB [Suspect]
     Route: 041
  4. RITUXIMAB [Suspect]
     Route: 041
     Dates: start: 20100205, end: 20100205
  5. RITUXIMAB [Suspect]
     Route: 065
     Dates: start: 20090619, end: 20100205
  6. ENDOXAN [Suspect]
     Indication: CHRONIC LYMPHOCYTIC LEUKAEMIA
     Route: 048
     Dates: start: 20081127, end: 20081228
  7. FLUDARA [Suspect]
     Indication: PRODUCT USED FOR UNKNOWN INDICATION
     Dosage: DOSE- 70 MG/D, (DAYS 1 THROUGH 3 OF CYCLE 2)
     Route: 065
     Dates: start: 20081224, end: 20081226
  8. DAFALGAN [Concomitant]
     Dosage: CAPSULE-500 MG
     Route: 065
  9. FLUINDIONE [Concomitant]
  10. KENZEN [Concomitant]
  11. AIROMIR [Concomitant]
  12. RAMIPRIL [Concomitant]
  13. SYMBICORT [Concomitant]

REACTIONS (1)
  - Squamous cell carcinoma [Unknown]
